FAERS Safety Report 25834818 (Version 2)
Quarter: 2025Q3

REPORT INFORMATION
  Report Type: Spontaneous
  Country: CN (occurrence: CN)
  Receive Date: 20250923
  Receipt Date: 20250930
  Transmission Date: 20251020
  Serious: Yes (Other)
  Sender: BOEHRINGER INGELHEIM
  Company Number: CN-BoehringerIngelheim-2025-BI-095687

PATIENT
  Age: 64 Year
  Sex: Female

DRUGS (4)
  1. AFATINIB [Suspect]
     Active Substance: AFATINIB
     Indication: Lung adenocarcinoma stage IV
  2. AFATINIB [Suspect]
     Active Substance: AFATINIB
     Indication: EGFR gene mutation
  3. BEVACIZUMAB [Suspect]
     Active Substance: BEVACIZUMAB
     Indication: Product used for unknown indication
  4. OSIMERTINIB [Concomitant]
     Active Substance: OSIMERTINIB
     Dates: start: 202203

REACTIONS (10)
  - Lymphangiosis carcinomatosa [Unknown]
  - Pericardial effusion [Unknown]
  - Malignant neoplasm progression [Recovered/Resolved]
  - Cardiac tamponade [Unknown]
  - Malignant neoplasm progression [Recovered/Resolved]
  - Metastases to meninges [Recovering/Resolving]
  - Therapy partial responder [Unknown]
  - Proteinuria [Unknown]
  - Drug tolerance decreased [Unknown]
  - Drug resistance [Unknown]

NARRATIVE: CASE EVENT DATE: 20230101
